FAERS Safety Report 11513460 (Version 1)
Quarter: 2015Q3

REPORT INFORMATION
  Report Type: Spontaneous
  Country: US (occurrence: None)
  Receive Date: 20150915
  Receipt Date: 20150915
  Transmission Date: 20151125
  Serious: No
  Sender: FDA-Public Use
  Company Number: None

PATIENT
  Age: 57 Year
  Sex: Male
  Weight: 129.28 kg

DRUGS (11)
  1. LISINOPRIL. [Concomitant]
     Active Substance: LISINOPRIL
  2. CARVEDILOL. [Concomitant]
     Active Substance: CARVEDILOL
  3. ZOLPIDEM [Concomitant]
     Active Substance: ZOLPIDEM\ZOLPIDEM TARTRATE
  4. SERTRALINE [Concomitant]
     Active Substance: SERTRALINE HYDROCHLORIDE
  5. METFORMIN [Concomitant]
     Active Substance: METFORMIN HYDROCHLORIDE
  6. EFFIENT [Suspect]
     Active Substance: PRASUGREL HYDROCHLORIDE
     Indication: ARTERIAL STENT INSERTION
     Route: 048
     Dates: start: 20141031, end: 20150531
  7. FUROSEMDIE [Concomitant]
  8. COQ10 [Concomitant]
     Active Substance: UBIDECARENONE
  9. LOVASTATIN. [Concomitant]
     Active Substance: LOVASTATIN
  10. LANTUS [Concomitant]
     Active Substance: INSULIN GLARGINE
  11. ASPIRIN. [Concomitant]
     Active Substance: ASPIRIN

REACTIONS (6)
  - Pain in extremity [None]
  - Mobility decreased [None]
  - Cardiovascular disorder [None]
  - Myalgia [None]
  - Quality of life decreased [None]
  - Muscle injury [None]

NARRATIVE: CASE EVENT DATE: 20150908
